FAERS Safety Report 7204093-8 (Version None)
Quarter: 2010Q4

REPORT INFORMATION
  Report Type: 
  Country: None (occurrence: None)
  Receive Date: 20101230
  Receipt Date: 20101220
  Transmission Date: 20110411
  Serious: Yes (Hospitalization)
  Sender: FDA-Public Use
  Company Number: US-ROCHE-546820

PATIENT
  Sex: Male
  Weight: 80 kg

DRUGS (10)
  1. BEVACIZUMAB [Suspect]
     Indication: NON-SMALL CELL LUNG CANCER
     Dosage: 1200 MG, Q3W
     Route: 042
     Dates: start: 20070918
  2. ERLOTINIB [Suspect]
     Indication: NON-SMALL CELL LUNG CANCER
     Dosage: 150 MG, QD
     Route: 048
     Dates: start: 20071218
  3. LUMIGAN [Concomitant]
  4. LEVOBUNOLOL HCL [Concomitant]
  5. ZYMAR [Concomitant]
  6. LISINOPRIL [Concomitant]
     Dosage: 40 MG, QD
  7. ASPIRIN [Concomitant]
     Dosage: 81 MG, QD
  8. PAXIL [Concomitant]
     Dosage: 10 MG, QD
  9. SIMVASTATIN [Concomitant]
     Dosage: 20 MG, QPM
  10. PROLIXIN [Concomitant]
     Dosage: 250 MG, 1/MONTH
     Route: 030

REACTIONS (1)
  - MENTAL STATUS CHANGES [None]
